FAERS Safety Report 9277439 (Version 1)
Quarter: 2013Q2

REPORT INFORMATION
  Report Type: Spontaneous
  Country: US (occurrence: None)
  Receive Date: 20130503
  Receipt Date: 20130503
  Transmission Date: 20140414
  Serious: Yes (Hospitalization)
  Sender: FDA-Public Use
  Company Number: None

PATIENT
  Age: 66 Year
  Sex: Male
  Weight: 69.5 kg

DRUGS (1)
  1. PACLITAXEL [Suspect]
     Route: 042
     Dates: start: 20130225, end: 20130225

REACTIONS (2)
  - Dyspnoea [None]
  - Hypoxia [None]
